FAERS Safety Report 11646549 (Version 2)
Quarter: 2016Q2

REPORT INFORMATION
  Report Type: Spontaneous
  Country: US (occurrence: US)
  Receive Date: 20151020
  Receipt Date: 20160429
  Transmission Date: 20160815
  Serious: No
  Sender: FDA-Public Use
  Company Number: US-ROCHE-1622064

PATIENT
  Sex: Male

DRUGS (10)
  1. WARFARIN [Concomitant]
     Active Substance: WARFARIN
  2. ALBUTEROL. [Concomitant]
     Active Substance: ALBUTEROL
  3. BETAMETHASON [Concomitant]
     Active Substance: BETAMETHASONE
  4. ESBRIET [Suspect]
     Active Substance: PIRFENIDONE
     Indication: IDIOPATHIC PULMONARY FIBROSIS
     Route: 048
     Dates: start: 20150515
  5. ALFUZOSIN [Concomitant]
     Active Substance: ALFUZOSIN
  6. SPIRIVA [Concomitant]
     Active Substance: TIOTROPIUM BROMIDE MONOHYDRATE
  7. GARLIC. [Concomitant]
     Active Substance: GARLIC
  8. CARVEDILOL. [Concomitant]
     Active Substance: CARVEDILOL
  9. ESBRIET [Suspect]
     Active Substance: PIRFENIDONE
     Route: 048
     Dates: start: 20150505
  10. FUROSEMIDE. [Concomitant]
     Active Substance: FUROSEMIDE

REACTIONS (11)
  - Visual impairment [Unknown]
  - Hypoaesthesia [Unknown]
  - Pain in extremity [Unknown]
  - Swelling [Unknown]
  - Paraesthesia [Unknown]
  - Diarrhoea [Not Recovered/Not Resolved]
  - Urinary retention [Not Recovered/Not Resolved]
  - Dyspnoea [Unknown]
  - Drug dose omission [Unknown]
  - Hypoaesthesia [Not Recovered/Not Resolved]
  - Pain [Unknown]
